FAERS Safety Report 19828199 (Version 1)
Quarter: 2021Q3

REPORT INFORMATION
  Report Type: Spontaneous
  Country: DE (occurrence: DE)
  Receive Date: 20210914
  Receipt Date: 20210914
  Transmission Date: 20211014
  Serious: Yes (Hospitalization)
  Sender: FDA-Public Use
  Company Number: DE-TEVA-2021-DE-1951460

PATIENT
  Age: 83 Year
  Sex: Male

DRUGS (9)
  1. BENSERAZID/LEVODOPA [Suspect]
     Active Substance: BENSERAZIDE\LEVODOPA
     Dosage: 25 | 100 MG, 5X, 1 DF
     Route: 048
  2. RASAGILIN [Suspect]
     Active Substance: RASAGILINE MESYLATE
     Dosage: 1 MILLIGRAM DAILY; 1?0?0?0
     Route: 048
  3. BROMAZEPAM [Concomitant]
     Active Substance: BROMAZEPAM
     Dosage: 6 MG, REQUIREMENT
     Route: 048
  4. CANDESARTAN. [Concomitant]
     Active Substance: CANDESARTAN
     Dosage: 32 MILLIGRAM DAILY; 0?0?1?0
     Route: 048
  5. ENTACAPON [Suspect]
     Active Substance: ENTACAPONE
     Dosage: 200 MG, 5X,
     Route: 048
  6. AMANTADIN [Concomitant]
     Active Substance: AMANTADINE
     Dosage: 100 MILLIGRAM DAILY; 1?0?0?0
     Route: 048
  7. TAMSULOSIN [Concomitant]
     Active Substance: TAMSULOSIN
     Dosage: .4 MILLIGRAM DAILY; 0?0?1?0
     Route: 048
  8. KALIUM/MAGNESIUM [Concomitant]
     Dosage: 4 DOSAGE FORMS DAILY; 117.3|36.5 MG, 2?0?2?0
     Route: 048
  9. BISOPROLOL [Concomitant]
     Active Substance: BISOPROLOL
     Dosage: 2.5 MILLIGRAM DAILY; 1?0?0?0
     Route: 048

REACTIONS (3)
  - Nausea [Recovering/Resolving]
  - Dysuria [Recovering/Resolving]
  - Diarrhoea [Recovering/Resolving]
